FAERS Safety Report 6917347-7 (Version None)
Quarter: 2010Q3

REPORT INFORMATION
  Report Type: 
  Country: None (occurrence: None)
  Receive Date: 20100810
  Receipt Date: 20100802
  Transmission Date: 20110219
  Serious: Yes (Other)
  Sender: FDA-Public Use
  Company Number: CO-JNJFOC-20100801252

PATIENT
  Age: 14 Year
  Sex: Female
  Weight: 36 kg

DRUGS (7)
  1. REMICADE [Suspect]
     Indication: UVEITIS
     Route: 042
  2. REMICADE [Suspect]
     Indication: JUVENILE ARTHRITIS
     Route: 042
  3. ENSURE [Concomitant]
  4. FOLIC ACID [Concomitant]
  5. METHOTREXATE [Concomitant]
  6. LANSOPRAZOL [Concomitant]
  7. PARACETAMOL [Concomitant]

REACTIONS (3)
  - CYANOSIS [None]
  - HYPOTHERMIA [None]
  - PYREXIA [None]
